FAERS Safety Report 12713951 (Version 1)
Quarter: 2016Q3

REPORT INFORMATION
  Report Type: Report from Study
  Country: US (occurrence: US)
  Receive Date: 20160905
  Receipt Date: 20160905
  Transmission Date: 20161109
  Serious: Yes (Hospitalization, Other)
  Sender: FDA-Public Use
  Company Number: US-ROCHE-1592391

PATIENT
  Age: 71 Year
  Sex: Female
  Weight: 69 kg

DRUGS (5)
  1. BEVACIZUMAB [Suspect]
     Active Substance: BEVACIZUMAB
     Route: 042
     Dates: start: 20141230
  2. BEVACIZUMAB [Suspect]
     Active Substance: BEVACIZUMAB
     Route: 042
     Dates: start: 20140617
  3. BEVACIZUMAB [Suspect]
     Active Substance: BEVACIZUMAB
     Indication: MALIGNANT MELANOMA
     Dosage: DATE OF LAST DOSE PRIOR TO SAE OF BEVACIZUMAB - 28/OCT/2014
     Route: 042
     Dates: start: 20140325
  4. IPILIMUMAB [Suspect]
     Active Substance: IPILIMUMAB
     Indication: MALIGNANT MELANOMA
     Dosage: DATE OF LAST DOSE PRIOR TO SAE OF BEVACIZUMAB -31/MAR/2015
     Route: 042
     Dates: start: 20140325
  5. BEVACIZUMAB [Suspect]
     Active Substance: BEVACIZUMAB
     Route: 042
     Dates: start: 20150306

REACTIONS (8)
  - Blood alkaline phosphatase increased [Unknown]
  - Anaemia [Unknown]
  - Headache [Unknown]
  - Cholecystitis [Unknown]
  - Chronic kidney disease [Recovering/Resolving]
  - Alanine aminotransferase increased [Unknown]
  - Abdominal pain upper [Unknown]
  - Vomiting [Recovering/Resolving]

NARRATIVE: CASE EVENT DATE: 20150519
